FAERS Safety Report 25951052 (Version 1)
Quarter: 2025Q4

REPORT INFORMATION
  Report Type: Spontaneous
  Country: CA (occurrence: CA)
  Receive Date: 20251023
  Receipt Date: 20251023
  Transmission Date: 20260118
  Serious: Yes (Other)
  Sender: ROCHE
  Company Number: CA-ROCHE-10000412243

PATIENT
  Sex: Female

DRUGS (3)
  1. MYCOPHENOLATE MOFETIL [Suspect]
     Active Substance: MYCOPHENOLATE MOFETIL
     Indication: Morphoea
     Route: 065
  2. METHOTREXATE SODIUM [Suspect]
     Active Substance: METHOTREXATE SODIUM
     Indication: Morphoea
     Route: 065
  3. ROFLUMILAST [Suspect]
     Active Substance: ROFLUMILAST
     Indication: Morphoea
     Route: 061

REACTIONS (2)
  - Disease progression [Recovering/Resolving]
  - Treatment failure [Unknown]
